FAERS Safety Report 7793832-3 (Version None)
Quarter: 2011Q4

REPORT INFORMATION
  Report Type: 
  Country: None (occurrence: None)
  Receive Date: 20111004
  Receipt Date: 20110926
  Transmission Date: 20120403
  Serious: Yes (Other)
  Sender: FDA-Public Use
  Company Number: CO-AMGEN-COLSP2011050004

PATIENT
  Age: 55 Year
  Sex: Male

DRUGS (3)
  1. CEPHALEXIN [Concomitant]
     Dosage: UNK
  2. ENBREL [Suspect]
     Indication: PRODUCT USED FOR UNKNOWN INDICATION
     Dosage: 50 MG, WEEKLY
     Route: 058
     Dates: start: 20090926
  3. IBUPROFEN [Concomitant]
     Dosage: UNK

REACTIONS (3)
  - NEPHROLITHIASIS [None]
  - BACK PAIN [None]
  - PERIPHERAL COLDNESS [None]
